FAERS Safety Report 21907961 (Version 1)
Quarter: 2023Q1

REPORT INFORMATION
  Report Type: Spontaneous
  Country: JP (occurrence: JP)
  Receive Date: 20230125
  Receipt Date: 20230125
  Transmission Date: 20230417
  Serious: Yes (Hospitalization)
  Sender: FDA-Public Use
  Company Number: JP-VIATRISJAPAN-2023M1007771AA

PATIENT
  Age: 17 Year
  Sex: Female

DRUGS (5)
  1. CELECOXIB [Suspect]
     Active Substance: CELECOXIB
     Indication: Pericarditis
     Dosage: 200 MILLIGRAM, QD
     Route: 065
  2. CELECOXIB [Suspect]
     Active Substance: CELECOXIB
     Indication: Analgesic intervention supportive therapy
  3. LOXOPROFEN [Suspect]
     Active Substance: LOXOPROFEN
     Indication: Pericarditis
     Dosage: 180 MILLIGRAM, QD
     Route: 065
  4. LOXOPROFEN [Suspect]
     Active Substance: LOXOPROFEN
     Indication: Analgesic intervention supportive therapy
  5. ACETAMINOPHEN [Concomitant]
     Active Substance: ACETAMINOPHEN
     Indication: Pericarditis
     Dosage: UNK
     Route: 065

REACTIONS (4)
  - Takayasu^s arteritis [Unknown]
  - Renal artery stenosis [Not Recovered/Not Resolved]
  - Renal disorder [Unknown]
  - Nephropathy toxic [Unknown]
